FAERS Safety Report 24766707 (Version 1)
Quarter: 2024Q4

REPORT INFORMATION
  Report Type: Spontaneous
  Country: US (occurrence: None)
  Receive Date: 20241223
  Receipt Date: 20241223
  Transmission Date: 20250115
  Serious: Yes (Other)
  Sender: Public
  Company Number: None

PATIENT
  Age: 73 Year
  Sex: Female

DRUGS (2)
  1. REGADENOSON [Suspect]
     Active Substance: REGADENOSON
     Indication: Chest pain
     Dosage: OTHER FREQUENCY : ONCE;?
     Route: 040
     Dates: start: 20241211, end: 20241211
  2. REGADENOSON [Concomitant]
     Active Substance: REGADENOSON
     Dates: start: 20241211, end: 20241211

REACTIONS (2)
  - Cardiac procedure complication [None]
  - Cardiac arrest [None]

NARRATIVE: CASE EVENT DATE: 20241211
